FAERS Safety Report 4650053-0 (Version None)
Quarter: 2005Q2

REPORT INFORMATION
  Report Type: 
  Country: None (occurrence: None)
  Receive Date: 20050428
  Receipt Date: 20050411
  Transmission Date: 20051028
  Serious: Yes (Death, Hospitalization)
  Sender: FDA-Public Use
  Company Number: M-05-131

PATIENT
  Age: 74 Year
  Sex: Male
  Weight: 63.5036 kg

DRUGS (5)
  1. PACERONE [Suspect]
     Indication: SICK SINUS SYNDROME
     Dosage: 400 MG QD PO
     Route: 048
     Dates: start: 20050201
  2. PACERONE [Suspect]
     Indication: SICK SINUS SYNDROME
     Dosage: 400 MG BID PO
     Route: 048
  3. PACERONE [Suspect]
     Indication: SICK SINUS SYNDROME
     Dosage: 400 MG TID PO
     Route: 048
  4. LISINOPRIL [Concomitant]
  5. COREG [Concomitant]

REACTIONS (7)
  - ASTHENIA [None]
  - DIPLOPIA [None]
  - HEPATIC ENZYME INCREASED [None]
  - LUNG DISORDER [None]
  - NAUSEA [None]
  - PNEUMOTHORAX [None]
  - PULMONARY FIBROSIS [None]
